FAERS Safety Report 24442959 (Version 2)
Quarter: 2024Q4

REPORT INFORMATION
  Report Type: Spontaneous
  Country: US (occurrence: US)
  Receive Date: 20241016
  Receipt Date: 20241017
  Transmission Date: 20250115
  Serious: No
  Sender: ROCHE
  Company Number: US-ROCHE-3570998

PATIENT
  Age: 48 Year
  Sex: Male

DRUGS (1)
  1. HEMLIBRA [Suspect]
     Active Substance: EMICIZUMAB-KXWH
     Indication: Factor VIII deficiency
     Dosage: STRENGTH- 105MG/0.7ML
     Route: 058
     Dates: start: 202301

REACTIONS (5)
  - Haemorrhage [Recovered/Resolved]
  - Fall [Unknown]
  - Joint injury [Unknown]
  - Back injury [Unknown]
  - Chest injury [Unknown]

NARRATIVE: CASE EVENT DATE: 20240515
